FAERS Safety Report 16393461 (Version 1)
Quarter: 2019Q2

REPORT INFORMATION
  Report Type: Spontaneous
  Country: HR (occurrence: HR)
  Receive Date: 20190605
  Receipt Date: 20190605
  Transmission Date: 20190711
  Serious: Yes (Other)
  Sender: FDA-Public Use
  Company Number: HR-GLAXOSMITHKLINE-HR2019097701

PATIENT
  Sex: Male

DRUGS (1)
  1. WELLBUTRIN XL [Suspect]
     Active Substance: BUPROPION HYDROCHLORIDE
     Indication: PRODUCT USED FOR UNKNOWN INDICATION
     Dosage: 2250 MG, UNK
     Route: 048
     Dates: start: 20190129, end: 20190130

REACTIONS (4)
  - Drug abuse [Unknown]
  - Confusional state [Unknown]
  - Intentional overdose [Unknown]
  - Dyskinesia [Unknown]

NARRATIVE: CASE EVENT DATE: 201901
